FAERS Safety Report 4430172-4 (Version None)
Quarter: 2004Q3

REPORT INFORMATION
  Report Type: 
  Country: None (occurrence: None)
  Receive Date: 20040817
  Receipt Date: 20040806
  Transmission Date: 20050211
  Serious: Yes (Other)
  Sender: FDA-Public Use
  Company Number: STA-AE-04-MTX-354

PATIENT
  Age: 34 Year
  Sex: Male

DRUGS (3)
  1. METHOTREXATE [Suspect]
     Indication: MULTIPLE SCLEROSIS
  2. NOVANTRONE [Suspect]
     Indication: MULTIPLE SCLEROSIS
     Dosage: TOTAL DOSE OF 108 MG
  3. AZATHIOPRINE [Suspect]
     Indication: MULTIPLE SCLEROSIS

REACTIONS (1)
  - ACUTE MYELOID LEUKAEMIA [None]
